FAERS Safety Report 8934352 (Version 1)
Quarter: 2012Q4

REPORT INFORMATION
  Report Type: 
  Country: US (occurrence: US)
  Receive Date: 20121129
  Receipt Date: 20121129
  Transmission Date: 20130627
  Serious: Yes (Other)
  Sender: FDA-Public Use
  Company Number: US-PFIZER INC-2012295294

PATIENT
  Age: 59 Year
  Sex: Female

DRUGS (10)
  1. CELEBREX [Suspect]
     Dosage: 200 mg, 1 cap(s), 1-3 times a day
     Route: 048
  2. PROCARDIA XL [Suspect]
     Dosage: 60 mg, 1x/day
     Route: 048
  3. LIPITOR [Suspect]
     Dosage: 10 mg, 1x/day
     Route: 048
  4. GLUCOTROL XL [Suspect]
     Dosage: 10 mg, 1x/day
     Route: 048
  5. NAPROSYN [Concomitant]
     Dosage: 500 mg, 2x/day
     Route: 048
  6. LAMISIL [Concomitant]
     Dosage: 250 mg, 1x/day
     Route: 048
  7. HYDROCHLOROTHIAZIDE [Concomitant]
     Dosage: 25 mg, 1x/day
     Route: 048
  8. GABAPENTIN [Concomitant]
     Dosage: 300 mg, 3x/day
     Route: 048
  9. HUMALOG MIX PEN [Concomitant]
     Dosage: 22 IU, 1x/day
     Route: 058
  10. LANTUS [Concomitant]
     Dosage: 100 IU/ml, 1x/day, at bedtime
     Route: 058

REACTIONS (8)
  - Autonomic neuropathy [Unknown]
  - Type 2 diabetes mellitus [Unknown]
  - Type 1 diabetes mellitus [Unknown]
  - Talipes [Unknown]
  - Essential hypertension [Unknown]
  - Hyperlipidaemia [Unknown]
  - Paronychia [Unknown]
  - Back pain [Unknown]
